FAERS Safety Report 8053095-0 (Version None)
Quarter: 2012Q1

REPORT INFORMATION
  Report Type: 
  Country: None (occurrence: None)
  Receive Date: 20120118
  Receipt Date: 20120104
  Transmission Date: 20120608
  Serious: Yes (Hospitalization, Other)
  Sender: FDA-Public Use
  Company Number: GB-PFIZER INC-2011302103

PATIENT
  Age: 48 Year
  Sex: Male

DRUGS (9)
  1. SPIRONOLACTONE [Suspect]
     Indication: ASCITES
     Dosage: UNK
     Dates: end: 20080101
  2. ATENOLOL [Suspect]
     Dosage: UNK
     Dates: start: 20050101, end: 20070101
  3. DIDANOSINE [Concomitant]
     Indication: HIV INFECTION
  4. PRAVASTATIN [Concomitant]
  5. ACETYLSALICYLIC ACID [Concomitant]
  6. SPIRONOLACTONE [Suspect]
     Dosage: 100 MG, 1X/DAY
     Dates: start: 20090501
  7. ATENOLOL [Suspect]
     Dosage: UNK
     Dates: start: 20090101
  8. RANITIDINE [Concomitant]
  9. PROPRANOLOL HCL [Suspect]
     Indication: PORTAL HYPERTENSION
     Dosage: 40 MG, 2X/DAY
     Dates: start: 20070101, end: 20091101

REACTIONS (5)
  - ASCITES [None]
  - HYPERKALAEMIA [None]
  - GYNAECOMASTIA [None]
  - INTESTINAL OBSTRUCTION [None]
  - SCLEROSING ENCAPSULATING PERITONITIS [None]
